FAERS Safety Report 7848629-2 (Version None)
Quarter: 2011Q4

REPORT INFORMATION
  Report Type: 
  Country: None (occurrence: None)
  Receive Date: 20111026
  Receipt Date: 20111020
  Transmission Date: 20120403
  Serious: Yes (Death)
  Sender: FDA-Public Use
  Company Number: US-BIOGENIDEC-2011BI036014

PATIENT
  Age: 33 Year
  Sex: Female

DRUGS (9)
  1. CALCIUM CARBONATE [Concomitant]
  2. TYSABRI [Suspect]
     Indication: MULTIPLE SCLEROSIS
     Route: 042
     Dates: start: 20091118, end: 20110815
  3. VESICARE [Concomitant]
  4. BACLOFEN [Concomitant]
  5. LISINOPRIL [Concomitant]
  6. ASPIRIN [Concomitant]
  7. VITAMIN D [Concomitant]
  8. COLACE [Concomitant]
  9. TYLENOL-500 [Concomitant]

REACTIONS (1)
  - DEATH [None]
